FAERS Safety Report 4314995-8 (Version None)
Quarter: 2004Q1

REPORT INFORMATION
  Report Type: 
  Country: None (occurrence: None)
  Receive Date: 20040309
  Receipt Date: 20040211
  Transmission Date: 20041129
  Serious: Yes (Other)
  Sender: FDA-Public Use
  Company Number: 235328

PATIENT
  Sex: 0

DRUGS (1)
  1. ACTRAPID PENFILL (INSULIN HUMAN) SOLUTION FOR INJECTION, 100IU/ML [Suspect]

REACTIONS (1)
  - LOSS OF CONSCIOUSNESS [None]
